FAERS Safety Report 14959142 (Version 1)
Quarter: 2018Q2

REPORT INFORMATION
  Report Type: Spontaneous
  Country: LB (occurrence: LB)
  Receive Date: 20180531
  Receipt Date: 20180531
  Transmission Date: 20180711
  Serious: Yes (Hospitalization, Other)
  Sender: FDA-Public Use
  Company Number: LB-MYLANLABS-2018M1036033

PATIENT
  Age: 56 Year
  Sex: Male

DRUGS (3)
  1. CYTARABINE. [Suspect]
     Active Substance: CYTARABINE
     Indication: CENTRAL NERVOUS SYSTEM LYMPHOMA
     Dosage: 2 G/M2 (HIGH DOSE) TWICE DAILY ON DAYS 2 AND 3, ADMINISTERED EVERY THREE WEEKS; PLANNED FOR 6-8 C...
     Route: 065
  2. FOLINIC ACID [Concomitant]
     Active Substance: LEUCOVORIN
     Indication: SALVAGE THERAPY
     Route: 065
  3. METHOTREXATE. [Suspect]
     Active Substance: METHOTREXATE
     Indication: CENTRAL NERVOUS SYSTEM LYMPHOMA
     Dosage: 3 G/M2 (HIGH DOSE) INFUSED OVER 24 HOURS ON DAY 1 ADMINISTERED EVERY THREE WEEKS; PLANNED FOR 6-8...
     Route: 050

REACTIONS (4)
  - Hypersensitivity vasculitis [Recovered/Resolved]
  - Febrile neutropenia [Recovered/Resolved]
  - Acute kidney injury [Recovered/Resolved]
  - Thrombocytopenia [Recovered/Resolved]
